FAERS Safety Report 9109800 (Version 1)
Quarter: 2013Q1

REPORT INFORMATION
  Report Type: Spontaneous
  Country: US (occurrence: US)
  Receive Date: 20130222
  Receipt Date: 20130222
  Transmission Date: 20140127
  Serious: No
  Sender: FDA-Public Use
  Company Number: US-PFIZER INC-2013064692

PATIENT
  Sex: Female

DRUGS (2)
  1. LEVOXYL [Suspect]
     Indication: HYPOTHYROIDISM
     Dosage: 118.5 UG (HALF TABLET OF 125UG + HALF TABLET OF 112UG), 1X/DAY
     Route: 048
     Dates: start: 1999
  2. CYTOMEL [Concomitant]
     Indication: HYPOTHYROIDISM
     Dosage: 5 UG, UNK

REACTIONS (2)
  - Psychomotor hyperactivity [Unknown]
  - Feeling abnormal [Unknown]
